FAERS Safety Report 5003888-9 (Version None)
Quarter: 2006Q2

REPORT INFORMATION
  Report Type: 
  Country: None (occurrence: None)
  Receive Date: 20060515
  Receipt Date: 20060428
  Transmission Date: 20061013
  Serious: Yes (Hospitalization)
  Sender: FDA-Public Use
  Company Number: 8016703

PATIENT
  Age: 69 Year
  Sex: Female
  Weight: 45 kg

DRUGS (16)
  1. KEPPRA [Suspect]
     Indication: CONVULSION
     Dosage: 500 MG 2/D PO
     Route: 048
     Dates: start: 20060105
  2. PHENYTOIN [Suspect]
     Indication: CONVULSION
     Dosage: 230 MG PO
     Route: 048
     Dates: start: 20060105, end: 20060105
  3. PHENYTOIN [Suspect]
     Indication: CONVULSION
     Dosage: 260 MG PO
     Route: 048
     Dates: start: 20060106, end: 20060213
  4. PHENYTOIN [Suspect]
     Indication: CONVULSION
     Dosage: 100 MG 1/D PO
     Route: 048
     Dates: start: 20060214, end: 20060214
  5. PHENYTOIN [Suspect]
     Indication: CONVULSION
     Dosage: 100 MG 2/D PO
     Route: 048
     Dates: start: 20060215, end: 20060224
  6. PHENYTOIN [Suspect]
     Indication: CONVULSION
     Dosage: 50 MG 3/D PO
     Route: 048
     Dates: start: 20060225
  7. VALPROIC ACID [Suspect]
     Indication: CONVULSION
     Dosage: 500 MG 2/D PO
     Route: 048
     Dates: start: 20060104
  8. DIVALPROEX SODIUM [Suspect]
     Indication: CONVULSION
     Dosage: 1250 MG PO
     Route: 048
     Dates: start: 20060105, end: 20060214
  9. DIVALPROEX SODIUM [Suspect]
     Indication: CONVULSION
     Dosage: 750 MG 2/D PO
     Route: 048
     Dates: start: 20060215
  10. CALCITONIN, NI NAS [Concomitant]
  11. RISEDRONATE [Concomitant]
  12. CALCIUM GLUCONATE [Concomitant]
  13. FUROSEMIDE [Concomitant]
  14. BUDESONIDE [Concomitant]
  15. TIOTROPIUM [Concomitant]
  16. VITAMIN B COMPLEX WITH C [Concomitant]

REACTIONS (3)
  - ANTICONVULSANT DRUG LEVEL BELOW THERAPEUTIC [None]
  - DRUG INTERACTION [None]
  - DRUG TOXICITY [None]
